FAERS Safety Report 9483764 (Version 2)
Quarter: 2013Q3

REPORT INFORMATION
  Report Type: Spontaneous
  Country: US (occurrence: US)
  Receive Date: 20130828
  Receipt Date: 20130828
  Transmission Date: 20140515
  Serious: Yes (Death, Hospitalization, Other)
  Sender: FDA-Public Use
  Company Number: US-AMGEN-KDL243101

PATIENT
  Age: 72 Year
  Sex: Female

DRUGS (1)
  1. ENBREL [Suspect]
     Indication: RHEUMATOID ARTHRITIS
     Dosage: 50 MG, QWK
     Route: 058
     Dates: start: 20040929

REACTIONS (6)
  - Death [Fatal]
  - Platelet count decreased [Unknown]
  - Haematological malignancy [Not Recovered/Not Resolved]
  - Pyrexia [Unknown]
  - Plasma cell myeloma [Unknown]
  - Metabolic acidosis [Unknown]
